FAERS Safety Report 12400743 (Version 2)
Quarter: 2016Q2

REPORT INFORMATION
  Report Type: Spontaneous
  Country: US (occurrence: US)
  Receive Date: 20160525
  Receipt Date: 20160525
  Transmission Date: 20160815
  Serious: No
  Sender: FDA-Public Use
  Company Number: US-SA-2015SA096977

PATIENT
  Age: 72 Year
  Sex: Female

DRUGS (2)
  1. LANTUS SOLOSTAR [Suspect]
     Active Substance: INSULIN GLARGINE
     Indication: TYPE 2 DIABETES MELLITUS
     Dosage: DOSE AND FREQUENCY- 50-60 UNITS EVERY EVENING
     Route: 065
     Dates: start: 2013
  2. SOLOSTAR [Concomitant]
     Active Substance: DEVICE
     Dates: start: 2013

REACTIONS (7)
  - Injection site haemorrhage [Unknown]
  - Injection site discolouration [Unknown]
  - Dizziness [Unknown]
  - Back disorder [Unknown]
  - Cognitive disorder [Unknown]
  - Vertigo [Unknown]
  - Gait disturbance [Unknown]
